FAERS Safety Report 9628571 (Version 1)
Quarter: 2013Q4

REPORT INFORMATION
  Report Type: Report from Study
  Country: US (occurrence: US)
  Receive Date: 20131017
  Receipt Date: 20131017
  Transmission Date: 20140711
  Serious: Yes (Hospitalization)
  Sender: FDA-Public Use
  Company Number: US-ASTRAZENECA-2013SE74873

PATIENT
  Age: 75 Year
  Sex: Female
  Weight: 64.4 kg

DRUGS (4)
  1. NEXIUM [Suspect]
     Indication: GASTROOESOPHAGEAL REFLUX DISEASE
     Route: 048
     Dates: start: 20130925, end: 20131001
  2. HYDROCHLOROTHIAZIDE [Concomitant]
     Indication: HYPERTENSION
     Route: 048
  3. NISOLDIPINE [Concomitant]
     Indication: HYPERTENSION
     Route: 048
  4. VITAMIN A AND D [Concomitant]
     Dosage: DAILY
     Route: 048

REACTIONS (3)
  - Atrial fibrillation [Unknown]
  - Dyspepsia [Unknown]
  - Intentional drug misuse [Unknown]
